FAERS Safety Report 23777912 (Version 3)
Quarter: 2024Q3

REPORT INFORMATION
  Report Type: Spontaneous
  Country: US (occurrence: US)
  Receive Date: 20240424
  Receipt Date: 20240916
  Transmission Date: 20241017
  Serious: Yes (Other)
  Sender: BAYER
  Company Number: US-BAYER-2024A059010

PATIENT
  Sex: Male
  Weight: 79.365 kg

DRUGS (4)
  1. KOVALTRY [Suspect]
     Active Substance: ANTIHEMOPHILIC FACTOR, HUMAN RECOMBINANT
     Indication: Factor VIII deficiency
     Dosage: INFUSE ~3000  UNITS(+/-10%)  INTRAVENOUSLY  EVERY 24 HOURS AS  NEEDED FOR BLEEDS
     Route: 042
  2. KOVALTRY [Suspect]
     Active Substance: ANTIHEMOPHILIC FACTOR, HUMAN RECOMBINANT
     Indication: Factor VIII deficiency
     Dosage: 2 DF, QD, INFUSE ~3000 UNITS(+/-10%) INTRAVENOUSLY EVERY 24 HOURS AS NEEDED FOR BLEEDS
     Route: 042
  3. HEMLIBRA [Concomitant]
     Active Substance: EMICIZUMAB-KXWH
     Dosage: 120MG SQ EVERY WEEK / NEXT DOSE DUE ON:  4/28, 05/05, 05/12, 05/19
     Route: 058
     Dates: start: 20240421
  4. GABAPENTIN [Concomitant]
     Active Substance: GABAPENTIN

REACTIONS (3)
  - Haemarthrosis [None]
  - Haemarthrosis [Recovered/Resolved]
  - Haemarthrosis [Recovered/Resolved]
